FAERS Safety Report 6480406-X (Version None)
Quarter: 2009Q4

REPORT INFORMATION
  Report Type: 
  Country: None (occurrence: None)
  Receive Date: 20091208
  Receipt Date: 20091202
  Transmission Date: 20100525
  Serious: Yes (Other)
  Sender: FDA-Public Use
  Company Number: US-JNJCH-2009031317

PATIENT
  Age: 66 Year
  Sex: Male
  Weight: 90.7 kg

DRUGS (7)
  1. ROLAIDS EXTRA STRENGTH FRESHMINT [Suspect]
     Indication: ABDOMINAL PAIN UPPER
     Dosage: TEXT:^1 TABLET WHENEVER I FELT PAIN^
     Route: 048
     Dates: start: 19600101, end: 20091130
  2. INSULIN [Concomitant]
     Indication: DIABETES MELLITUS
     Dosage: TEXT:1 X DAILY
     Route: 065
  3. OMEPRAZOLE [Concomitant]
     Indication: ULCER
     Dosage: TEXT:2 X DAILY / 20 MG
     Route: 065
  4. METFORMIN HCL [Concomitant]
     Indication: ULCER
     Dosage: TEXT:2 X DAILY / 1000MG
     Route: 065
  5. PLAVIX [Concomitant]
     Indication: BLOOD DISORDER
     Dosage: TEXT:1 X DAILY / 75MG
     Route: 065
  6. ATENOLOL [Concomitant]
     Indication: CARDIAC DISORDER
     Dosage: TEXT: 1 X DAILY / 12.5MG
     Route: 065
  7. AVAPRO [Concomitant]
     Indication: HYPERTENSION
     Dosage: TEXT:1 X DAILY / 150 MG
     Route: 065

REACTIONS (4)
  - ASTHENIA [None]
  - DIABETES MELLITUS [None]
  - OFF LABEL USE [None]
  - TREMOR [None]
